FAERS Safety Report 13665060 (Version 2)
Quarter: 2017Q3

REPORT INFORMATION
  Report Type: Spontaneous
  Country: DE (occurrence: DE)
  Receive Date: 20170619
  Receipt Date: 20170728
  Transmission Date: 20171127
  Serious: Yes (Other)
  Sender: FDA-Public Use
  Company Number: DE-NAPPMUNDI-GBR-2017-0045982

PATIENT
  Age: 30 Year
  Sex: Male

DRUGS (2)
  1. PALLADONE [Suspect]
     Active Substance: HYDROMORPHONE HYDROCHLORIDE
     Indication: PAIN
     Dosage: 1 MG, PRN
     Route: 065
     Dates: start: 20170402, end: 20170405
  2. PARACETAMOL [Suspect]
     Active Substance: ACETAMINOPHEN
     Indication: PAIN
     Dosage: 1 G, PRN
     Route: 042
     Dates: start: 20170402, end: 201704

REACTIONS (6)
  - Skin reaction [Recovered/Resolved]
  - Pyrexia [Unknown]
  - Abdominal pain lower [Unknown]
  - Off label use [Unknown]
  - Ileus paralytic [Recovered/Resolved]
  - Blood lactate dehydrogenase decreased [Recovered/Resolved]

NARRATIVE: CASE EVENT DATE: 201704
